FAERS Safety Report 11814043 (Version 1)
Quarter: 2015Q4

REPORT INFORMATION
  Report Type: Spontaneous
  Country: None (occurrence: None)
  Receive Date: 20151208
  Receipt Date: 20151208
  Transmission Date: 20160305
  Serious: No
  Sender: FDA-Public Use
  Company Number: None

PATIENT
  Age: 60 Year
  Sex: Male
  Weight: 97.52 kg

DRUGS (4)
  1. SENOKOT-S [Concomitant]
     Active Substance: DOCUSATE SODIUM\SENNOSIDES
  2. NORCO [Suspect]
     Active Substance: ACETAMINOPHEN\HYDROCODONE BITARTRATE
     Dosage: 2 PILLS, 3X/DAY AND 1 AT BEDTIM
     Route: 048
  3. KLONOPIN [Suspect]
     Active Substance: CLONAZEPAM
     Dosage: 1 PILL QHS, BEDTIME
     Route: 048
  4. LYRICA [Concomitant]
     Active Substance: PREGABALIN

REACTIONS (2)
  - Drug effect decreased [None]
  - Product substitution issue [None]

NARRATIVE: CASE EVENT DATE: 20130522
